FAERS Safety Report 4739779-8 (Version None)
Quarter: 2005Q3

REPORT INFORMATION
  Report Type: 
  Country: None (occurrence: None)
  Receive Date: 20050810
  Receipt Date: 20050512
  Transmission Date: 20060218
  Serious: No
  Sender: FDA-Public Use
  Company Number: US-GLAXOSMITHKLINE-A0558349A

PATIENT
  Age: 55 Year
  Sex: Male

DRUGS (7)
  1. PAXIL [Suspect]
     Indication: DEPRESSION
     Dosage: 20MG PER DAY
     Route: 048
     Dates: start: 20050501
  2. PAXIL CR [Concomitant]
     Indication: DEPRESSION
     Dosage: 25MG PER DAY
     Route: 048
     Dates: start: 19990101, end: 20050501
  3. FLOLAN [Concomitant]
  4. LASIX [Concomitant]
  5. NORVASC [Concomitant]
  6. WARFARIN [Concomitant]
  7. DIGOXIN [Concomitant]

REACTIONS (6)
  - ANOREXIA [None]
  - DRUG INEFFECTIVE [None]
  - DRUG WITHDRAWAL SYNDROME [None]
  - INSOMNIA [None]
  - NIGHT SWEATS [None]
  - TINNITUS [None]
